FAERS Safety Report 10962458 (Version 3)
Quarter: 2015Q2

REPORT INFORMATION
  Report Type: Spontaneous
  Country: US (occurrence: US)
  Receive Date: 20150327
  Receipt Date: 20150429
  Transmission Date: 20150821
  Serious: Yes (Other)
  Sender: FDA-Public Use
  Company Number: US-GLAXOSMITHKLINE INC.-US2015GSK040188

PATIENT
  Sex: Female

DRUGS (2)
  1. ADVAIR HFA [Suspect]
     Active Substance: FLUTICASONE PROPIONATE\SALMETEROL XINAFOATE
     Indication: PRODUCT USED FOR UNKNOWN INDICATION
     Dosage: UNK
     Dates: start: 2014
  2. VENTOLIN [Suspect]
     Active Substance: ALBUTEROL SULFATE
     Indication: ASTHMA
     Dosage: 90 UG, U
     Dates: start: 2014

REACTIONS (13)
  - Pneumonia [Unknown]
  - Disturbance in attention [Unknown]
  - Asthma [Unknown]
  - Neoplasm malignant [Not Recovered/Not Resolved]
  - Radiation injury [Unknown]
  - Face injury [Unknown]
  - Drug effect decreased [Unknown]
  - Reading disorder [Unknown]
  - Gastrooesophageal reflux disease [Unknown]
  - Expired product administered [Unknown]
  - Heart injury [Unknown]
  - Lung disorder [Unknown]
  - Intervertebral disc protrusion [Unknown]
